FAERS Safety Report 6741255-8 (Version None)
Quarter: 2010Q2

REPORT INFORMATION
  Report Type: 
  Country: None (occurrence: None)
  Receive Date: 20100526
  Receipt Date: 20100505
  Transmission Date: 20101027
  Serious: Yes (Death, Hospitalization, Disabling)
  Sender: FDA-Public Use
  Company Number: IT-CELGENEUS-083-50794-09110694

PATIENT
  Sex: Female

DRUGS (2)
  1. VIDAZA [Suspect]
     Indication: REFRACTORY CYTOPENIA WITH MULTILINEAGE DYSPLASIA
     Route: 058
     Dates: start: 20090810, end: 20091016
  2. VIDAZA [Suspect]
     Route: 058
     Dates: start: 20090629, end: 20090703

REACTIONS (2)
  - PNEUMONIA [None]
  - PYREXIA [None]
